FAERS Safety Report 10866433 (Version 1)
Quarter: 2015Q1

REPORT INFORMATION
  Report Type: Spontaneous
  Country: US (occurrence: None)
  Receive Date: 20150220
  Receipt Date: 20150220
  Transmission Date: 20150721
  Serious: Yes (Hospitalization, Other)
  Sender: FDA-Public Use
  Company Number: 201502067

PATIENT
  Sex: Male

DRUGS (1)
  1. TESTOPEL [Suspect]
     Active Substance: TESTOSTERONE
     Indication: BLOOD TESTOSTERONE DECREASED
     Route: 058
     Dates: start: 2011

REACTIONS (17)
  - Palpitations [None]
  - Dizziness [None]
  - Chest pain [None]
  - Angina unstable [None]
  - Blood pressure increased [None]
  - Atrial flutter [None]
  - Oedema peripheral [None]
  - Sleep apnoea syndrome [None]
  - Respiratory disorder [None]
  - Stent placement [None]
  - Dyspnoea [None]
  - Atrial fibrillation [None]
  - Economic problem [None]
  - Priapism [None]
  - Angina pectoris [None]
  - Fear [None]
  - Anhedonia [None]

NARRATIVE: CASE EVENT DATE: 20130525
